FAERS Safety Report 17855754 (Version 4)
Quarter: 2020Q3

REPORT INFORMATION
  Report Type: Report from Study
  Country: US (occurrence: US)
  Receive Date: 20200603
  Receipt Date: 20200807
  Transmission Date: 20201103
  Serious: Yes (Hospitalization)
  Sender: FDA-Public Use
  Company Number: US-ACTELION-A-US2020-205520

PATIENT
  Sex: Female
  Weight: 64.85 kg

DRUGS (3)
  1. VELETRI [Suspect]
     Active Substance: EPOPROSTENOL
     Dosage: 10 NG/KG, PER MIN
     Route: 042
  2. ELIQUIS [Concomitant]
     Active Substance: APIXABAN
  3. VELETRI [Suspect]
     Active Substance: EPOPROSTENOL
     Indication: PULMONARY HYPERTENSION
     Dosage: 12 NG/KG, PER MIN
     Route: 042

REACTIONS (14)
  - Leg amputation [Unknown]
  - Surgery [Unknown]
  - Asthenia [Unknown]
  - Diarrhoea [Recovering/Resolving]
  - Atrial flutter [Unknown]
  - Fatigue [Unknown]
  - Tremor [Unknown]
  - Hypotension [Unknown]
  - Fall [Unknown]
  - Oedema [Unknown]
  - Gangrene [Unknown]
  - Headache [Unknown]
  - Pain in extremity [Unknown]
  - Muscular weakness [Unknown]
